FAERS Safety Report 20907860 (Version 2)
Quarter: 2022Q3

REPORT INFORMATION
  Report Type: Spontaneous
  Country: DE (occurrence: DE)
  Receive Date: 20220602
  Receipt Date: 20220706
  Transmission Date: 20221027
  Serious: Yes (Death, Other)
  Sender: FDA-Public Use
  Company Number: DE-ROCHE-3090002

PATIENT
  Age: 62 Year

DRUGS (5)
  1. RITUXIMAB [Suspect]
     Active Substance: RITUXIMAB
     Indication: Follicular lymphoma
     Dosage: IN COMBO W/LENALIDOMIDE, 2ND LINE; IN COMBO W/BENDAMUSTIN, 3RD LINE; IN COMBO W/GDP
     Route: 065
  2. BENDAMUSTINE [Suspect]
     Active Substance: BENDAMUSTINE
     Indication: Follicular lymphoma
     Dosage: IN COMBINATION WITH RITUXIMAB, THIRD LINE
     Route: 065
  3. OBINUTUZUMAB [Suspect]
     Active Substance: OBINUTUZUMAB
     Indication: Follicular lymphoma
     Dosage: IN COMBINATION WITH IBRUTINIB, FIRST LINE, ALTERNATIVE STUDY
     Route: 065
  4. IBRUTINIB [Suspect]
     Active Substance: IBRUTINIB
     Indication: Follicular lymphoma
     Dosage: IN COMBINATION WITH OBINUTUZUMAB, FIRST LINE, ALTERNATIVE STUDY
     Route: 065
  5. LENALIDOMIDE [Suspect]
     Active Substance: LENALIDOMIDE
     Indication: Follicular lymphoma
     Dosage: IN COMBINATION WITH RITUXIMAB, SECOND LINE, MAGNIFY STUDY
     Route: 065

REACTIONS (2)
  - Septic shock [Fatal]
  - Neoplasm progression [Not Recovered/Not Resolved]
